FAERS Safety Report 10260619 (Version 4)
Quarter: 2014Q3

REPORT INFORMATION
  Report Type: Spontaneous
  Country: AU (occurrence: AU)
  Receive Date: 20140626
  Receipt Date: 20140805
  Transmission Date: 20150326
  Serious: Yes (Other)
  Sender: FDA-Public Use
  Company Number: AU-ROCHE-1422675

PATIENT
  Sex: Male

DRUGS (2)
  1. LUCENTIS [Suspect]
     Active Substance: RANIBIZUMAB
     Indication: AGE-RELATED MACULAR DEGENERATION
  2. LUCENTIS [Suspect]
     Active Substance: RANIBIZUMAB
     Indication: CHOROIDAL NEOVASCULARISATION
     Route: 050

REACTIONS (4)
  - Depressed mood [Unknown]
  - Mental impairment [Not Recovered/Not Resolved]
  - Maculopathy [Not Recovered/Not Resolved]
  - General physical health deterioration [Not Recovered/Not Resolved]
